FAERS Safety Report 20882200 (Version 4)
Quarter: 2022Q3

REPORT INFORMATION
  Report Type: Spontaneous
  Country: ES (occurrence: ES)
  Receive Date: 20220527
  Receipt Date: 20220728
  Transmission Date: 20221026
  Serious: Yes (Death, Hospitalization, Other)
  Sender: FDA-Public Use
  Company Number: ES-ORPHALAN-ES-ORP-22-00008

PATIENT
  Age: 30 Year
  Sex: Male

DRUGS (10)
  1. TRIENTINE TETRAHYDROCHLORIDE [Suspect]
     Active Substance: TRIENTINE TETRAHYDROCHLORIDE
     Indication: Hepato-lenticular degeneration
     Dosage: 150 MILLIGRAM (SINGLE DOSE), QD
     Route: 050
     Dates: start: 20220127, end: 20220505
  2. BOTOX [Concomitant]
     Active Substance: ONABOTULINUMTOXINA
     Indication: Product used for unknown indication
     Dosage: UNK
     Dates: start: 202111
  3. TRAMADOL HYDROCHLORIDE [Concomitant]
     Active Substance: TRAMADOL HYDROCHLORIDE
     Indication: Product used for unknown indication
     Dosage: 100MG/ML (8 PULS C/8H)
     Dates: start: 20220401, end: 20220505
  4. FENTANILO [FENTANYL] [Concomitant]
     Indication: Product used for unknown indication
     Dosage: 25MCG/H (1PATCH/WEEK)
     Dates: start: 20220429, end: 20220505
  5. CLONAZEPAM [Concomitant]
     Active Substance: CLONAZEPAM
     Indication: Product used for unknown indication
     Dosage: 0.5MG (1COMP/6H)
     Dates: start: 20220309, end: 20220505
  6. FLUOXETINE [Concomitant]
     Active Substance: FLUOXETINE HYDROCHLORIDE
     Indication: Product used for unknown indication
     Dosage: 20MG (1COMP/D)
     Dates: start: 20210915, end: 20220505
  7. CARBIDOPA\LEVODOPA [Concomitant]
     Active Substance: CARBIDOPA\LEVODOPA
     Indication: Product used for unknown indication
     Dosage: 25/250MG (2COMP/8H)
     Dates: start: 20220330, end: 20220505
  8. ZINC [Concomitant]
     Active Substance: ZINC
     Indication: Product used for unknown indication
     Dosage: 50 MILLIGRAM, Q8H
     Dates: start: 201711
  9. ZINC [Concomitant]
     Active Substance: ZINC
     Dosage: 50 MILLIGRAM, Q8H
     Dates: start: 201811, end: 201902
  10. ZINC [Concomitant]
     Active Substance: ZINC
     Dosage: 50 MILLIGRAM, Q8H
     Dates: start: 202104, end: 20220505

REACTIONS (3)
  - Pneumonia aspiration [Fatal]
  - Dysphagia [Fatal]
  - Off label use [Unknown]

NARRATIVE: CASE EVENT DATE: 20220127
